FAERS Safety Report 18990343 (Version 7)
Quarter: 2021Q4

REPORT INFORMATION
  Report Type: Spontaneous
  Country: JP (occurrence: JP)
  Receive Date: 20210310
  Receipt Date: 20211105
  Transmission Date: 20220303
  Serious: Yes (Death, Hospitalization, Other)
  Sender: FDA-Public Use
  Company Number: JP-BRISTOL-MYERS SQUIBB COMPANY-BMS-2021-021624

PATIENT
  Age: 70 Year
  Sex: Female
  Weight: 40 kg

DRUGS (12)
  1. OPDIVO [Suspect]
     Active Substance: NIVOLUMAB
     Indication: Non-small cell lung cancer recurrent
     Dosage: 360 MILLIGRAM, ONE TIME DOSE
     Route: 041
     Dates: start: 20210204, end: 20210204
  2. YERVOY [Suspect]
     Active Substance: IPILIMUMAB
     Indication: Non-small cell lung cancer
     Dosage: UNK UNK, ONE TIME DOSE
     Route: 041
     Dates: start: 20210204, end: 20210204
  3. ACOTIAMIDE HYDROCHLORIDE [Concomitant]
     Active Substance: ACOTIAMIDE HYDROCHLORIDE
     Indication: Prophylaxis
     Dosage: 100 MILLIGRAM, Q8H
     Route: 048
     Dates: start: 20191030, end: 20210210
  4. PANCRELIPASE [Concomitant]
     Active Substance: PANCRELIPASE
     Indication: Prophylaxis
     Dosage: 300 MILLIGRAM, Q8H
     Route: 048
     Dates: start: 20191030, end: 20210210
  5. ELDECALCITOL [Concomitant]
     Active Substance: ELDECALCITOL
     Indication: Prophylaxis
     Dosage: 0.75 MICROGRAM, QD
     Route: 048
     Dates: start: 20191030, end: 20210210
  6. LANSOPRAZOLE [Concomitant]
     Active Substance: LANSOPRAZOLE
     Indication: Prophylaxis
     Dosage: 15 MILLIGRAM, QD
     Route: 048
     Dates: start: 20191030, end: 20210210
  7. CLARITHROMYCIN [Concomitant]
     Active Substance: CLARITHROMYCIN
     Indication: Prophylaxis
     Dosage: 200 MILLIGRAM, Q12H
     Route: 048
     Dates: end: 20210210
  8. MS CONTIN [Concomitant]
     Active Substance: MORPHINE SULFATE
     Indication: Non-small cell lung cancer
     Dosage: 30 MILLIGRAM, Q12H
     Route: 048
     Dates: start: 20210204, end: 20210209
  9. MS CONTIN [Concomitant]
     Active Substance: MORPHINE SULFATE
     Dosage: 40 MILLIGRAM, Q12H
     Route: 048
     Dates: start: 20210209, end: 20210210
  10. MORPHINE HYDROCHLORIDE [Concomitant]
     Active Substance: MORPHINE HYDROCHLORIDE
     Indication: Non-small cell lung cancer
     Dosage: 10 MILLIGRAM, PRN (AS NECESSARY)
     Route: 048
     Dates: start: 20210204, end: 20210210
  11. DICLOFENAC SODIUM [Concomitant]
     Active Substance: DICLOFENAC SODIUM
     Indication: Non-small cell lung cancer
     Dosage: 25 MILLIGRAM, PRN
     Route: 054
     Dates: start: 20210205, end: 20210210
  12. SYMPROIC [Concomitant]
     Active Substance: NALDEMEDINE
     Indication: Prophylaxis
     Dosage: 0.2 MILLIGRAM, QD
     Route: 048
     Dates: start: 20210209, end: 20210210

REACTIONS (6)
  - Pneumonia [Fatal]
  - Tumour lysis syndrome [Fatal]
  - Tumour perforation [Fatal]
  - Cardiac failure acute [Unknown]
  - Pleural effusion [Recovering/Resolving]
  - Generalised oedema [Not Recovered/Not Resolved]

NARRATIVE: CASE EVENT DATE: 20210208
